FAERS Safety Report 21668146 (Version 1)
Quarter: 2022Q4

REPORT INFORMATION
  Report Type: Report from Study
  Country: US (occurrence: US)
  Receive Date: 20221201
  Receipt Date: 20221201
  Transmission Date: 20230113
  Serious: Yes (Hospitalization, Other)
  Sender: FDA-Public Use
  Company Number: US-BRISTOL-MYERS SQUIBB COMPANY-2022-144950

PATIENT
  Age: 80 Year
  Sex: Female
  Weight: 69 kg

DRUGS (3)
  1. NIVOLUMAB [Suspect]
     Active Substance: NIVOLUMAB
     Indication: Anal cancer metastatic
     Route: 065
     Dates: start: 20221010
  2. PACLITAXEL [Suspect]
     Active Substance: PACLITAXEL
     Indication: Anal cancer metastatic
     Route: 065
     Dates: start: 20221010
  3. CARBOPLATIN [Suspect]
     Active Substance: CARBOPLATIN
     Indication: Anal cancer metastatic
     Route: 065
     Dates: start: 20221010

REACTIONS (6)
  - Lymphocyte count decreased [Recovering/Resolving]
  - Diarrhoea [Recovering/Resolving]
  - Enterocolitis infectious [Recovering/Resolving]
  - Fatigue [Recovering/Resolving]
  - Muscular weakness [Recovering/Resolving]
  - Urinary tract infection [Recovering/Resolving]

NARRATIVE: CASE EVENT DATE: 20221119
